FAERS Safety Report 12212082 (Version 1)
Quarter: 2016Q1

REPORT INFORMATION
  Report Type: Spontaneous
  Country: IN (occurrence: IN)
  Receive Date: 20160325
  Receipt Date: 20160325
  Transmission Date: 20160526
  Serious: Yes (Hospitalization, Other)
  Sender: FDA-Public Use
  Company Number: IN-ELI_LILLY_AND_COMPANY-IN201603009057

PATIENT
  Age: 24 Year
  Sex: Male

DRUGS (2)
  1. OLANZAPINE. [Suspect]
     Active Substance: OLANZAPINE
     Indication: BIPOLAR DISORDER
     Dosage: 5 MG, QD
     Route: 065
  2. LORAZEPAM. [Concomitant]
     Active Substance: LORAZEPAM
     Indication: BIPOLAR DISORDER
     Dosage: 2 MG, PRN
     Route: 065

REACTIONS (7)
  - Diabetes mellitus [Unknown]
  - Electrocardiogram QT prolonged [Recovering/Resolving]
  - Hypercholesterolaemia [Recovering/Resolving]
  - Eosinophilia [Recovering/Resolving]
  - Toxicity to various agents [Unknown]
  - Weight increased [Unknown]
  - Congestive cardiomyopathy [Recovering/Resolving]
